FAERS Safety Report 8168111 (Version 5)
Quarter: 2014Q1

REPORT INFORMATION
  Report Type: Spontaneous
  Country: US (occurrence: US)
  Receive Date: 20111004
  Receipt Date: 20140128
  Transmission Date: 20141002
  Serious: Yes (Death, Hospitalization)
  Sender: FDA-Public Use
  Company Number: US-GLAXOSMITHKLINE-A0835745A

PATIENT
  Age: 77 Year
  Sex: Female
  Weight: 75.9 kg

DRUGS (1)
  1. AVANDIA [Suspect]
     Indication: TYPE 2 DIABETES MELLITUS
     Dosage: 4MG PER DAY
     Route: 048
     Dates: start: 20040127, end: 20050319

REACTIONS (3)
  - Acute myocardial infarction [Fatal]
  - Coronary artery disease [Fatal]
  - Chronic obstructive pulmonary disease [Unknown]
